FAERS Safety Report 20985981 (Version 1)
Quarter: 2022Q2

REPORT INFORMATION
  Report Type: Spontaneous
  Country: IT (occurrence: IT)
  Receive Date: 20220621
  Receipt Date: 20220621
  Transmission Date: 20220720
  Serious: Yes (Other)
  Sender: FDA-Public Use
  Company Number: IT-AMGEN-ITASP2022103831

PATIENT
  Age: 45 Year
  Sex: Female

DRUGS (9)
  1. ADALIMUMAB [Suspect]
     Active Substance: ADALIMUMAB
     Indication: Iridocyclitis
     Dosage: UNK
     Route: 065
  2. ADALIMUMAB [Suspect]
     Active Substance: ADALIMUMAB
     Indication: Psoriatic arthropathy
  3. METHOTREXATE [Concomitant]
     Active Substance: METHOTREXATE
  4. CYCLOSPORINE [Concomitant]
     Active Substance: CYCLOSPORINE
  5. LEFLUNOMIDE [Concomitant]
     Active Substance: LEFLUNOMIDE
  6. SULFASALAZINE [Concomitant]
     Active Substance: SULFASALAZINE
  7. INFLIXIMAB [Concomitant]
     Active Substance: INFLIXIMAB
  8. GOLIMUMAB [Concomitant]
     Active Substance: GOLIMUMAB
  9. SECUKINUMAB [Concomitant]
     Active Substance: SECUKINUMAB

REACTIONS (4)
  - Psoriatic arthropathy [Recovering/Resolving]
  - Therapeutic product effect decreased [Unknown]
  - Oral lichen planus [Recovered/Resolved]
  - Impaired work ability [Recovering/Resolving]
